FAERS Safety Report 5086802-X (Version None)
Quarter: 2006Q3

REPORT INFORMATION
  Report Type: 
  Country: None (occurrence: None)
  Receive Date: 20060818
  Receipt Date: 20060802
  Transmission Date: 20061208
  Serious: Yes (Hospitalization, Disabling, Other)
  Sender: FDA-Public Use
  Company Number: DSA_27806_2006

PATIENT
  Age: 51 Year
  Sex: Male
  Weight: 90.7194 kg

DRUGS (14)
  1. ATIVAN [Suspect]
     Indication: ANXIETY
     Dosage: 1 MG TID PO
     Route: 048
     Dates: start: 19870101, end: 20060102
  2. ATIVAN [Suspect]
     Indication: DRUG WITHDRAWAL SYNDROME
     Dosage: 2 MG Q6HR PO
     Route: 048
     Dates: start: 20060103, end: 20060104
  3. ATIVAN [Suspect]
     Indication: DRUG WITHDRAWAL SYNDROME
     Dosage: 1.5 MG Q6HR PO
     Route: 048
     Dates: start: 20060104, end: 20060105
  4. ATIVAN [Suspect]
     Indication: DRUG WITHDRAWAL SYNDROME
     Dosage: 1 MG Q6HR PO
     Route: 048
     Dates: start: 20060105, end: 20060106
  5. ATIVAN [Suspect]
     Indication: DRUG WITHDRAWAL SYNDROME
     Dosage: 0.5 MG Q6HR PO
     Route: 048
     Dates: start: 20060106, end: 20060107
  6. ATIVAN [Suspect]
     Indication: DRUG WITHDRAWAL SYNDROME
     Dosage: 2 MG PRN IM
     Route: 030
     Dates: start: 20060103, end: 20060107
  7. ALLEGRA [Concomitant]
  8. FOLIC ACID [Concomitant]
  9. REMERON [Concomitant]
  10. PROTONIX [Concomitant]
  11. SEROQUEL [Concomitant]
  12. MULTIPLE VITAMIN [Concomitant]
  13. THIAMINE [Concomitant]
  14. EFFEXOR XR [Concomitant]

REACTIONS (14)
  - AGITATION [None]
  - AGORAPHOBIA [None]
  - ANXIETY [None]
  - ASTHENIA [None]
  - BLOOD PRESSURE INCREASED [None]
  - DRUG INEFFECTIVE [None]
  - DRUG WITHDRAWAL SYNDROME [None]
  - EATING DISORDER [None]
  - FATIGUE [None]
  - HEART RATE INCREASED [None]
  - IMPAIRED DRIVING ABILITY [None]
  - IMPAIRED WORK ABILITY [None]
  - PYREXIA [None]
  - SUICIDAL IDEATION [None]
